FAERS Safety Report 17068673 (Version 1)
Quarter: 2019Q4

REPORT INFORMATION
  Report Type: Spontaneous
  Country: US (occurrence: US)
  Receive Date: 20191123
  Receipt Date: 20191123
  Transmission Date: 20200122
  Serious: Yes (Life-Threatening, Disabling)
  Sender: FDA-Public Use
  Company Number: US-TEVA-2019-US-1141994

PATIENT
  Sex: Female

DRUGS (2)
  1. AMIODARONE HYDROCHLORIDE. [Suspect]
     Active Substance: AMIODARONE HYDROCHLORIDE
     Indication: ATRIAL FIBRILLATION
     Route: 048
  2. AMIODARONE HYDROCHLORIDE TEVA [Suspect]
     Active Substance: AMIODARONE HYDROCHLORIDE
     Indication: ATRIAL FIBRILLATION
     Route: 048

REACTIONS (11)
  - Asthenia [Unknown]
  - Off label use [Unknown]
  - Blindness [Unknown]
  - Hepatic function abnormal [Unknown]
  - Traumatic lung injury [Unknown]
  - Dyspnoea exertional [Unknown]
  - Cough [Unknown]
  - Dyspnoea [Unknown]
  - Weight increased [Unknown]
  - Palpitations [Unknown]
  - Fatigue [Unknown]

NARRATIVE: CASE EVENT DATE: 201511
